FAERS Safety Report 21670934 (Version 2)
Quarter: 2022Q4

REPORT INFORMATION
  Report Type: Spontaneous
  Country: IT (occurrence: IT)
  Receive Date: 20221202
  Receipt Date: 20221212
  Transmission Date: 20230112
  Serious: Yes (Other)
  Sender: FDA-Public Use
  Company Number: None

PATIENT
  Age: 73 Year
  Sex: Female

DRUGS (12)
  1. VERAPAMIL [Interacting]
     Active Substance: VERAPAMIL HYDROCHLORIDE
     Indication: Product used for unknown indication
     Dosage: 40 MILLIGRAM PER DAY
     Route: 065
  2. INDAPAMIDE [Interacting]
     Active Substance: INDAPAMIDE
     Indication: Product used for unknown indication
     Dosage: 2.5 MILLIGRAM PER DAY
     Route: 065
  3. LOVASTATIN [Interacting]
     Active Substance: LOVASTATIN
     Indication: Product used for unknown indication
     Dosage: 10 MILLIGRAM PER DAY
     Route: 065
  4. APIXABAN [Interacting]
     Active Substance: APIXABAN
     Indication: Product used for unknown indication
     Dosage: 2.5 MILLIGRAM PER DAY
     Route: 065
  5. OXALIPLATIN [Interacting]
     Active Substance: OXALIPLATIN
     Indication: Adenocarcinoma of colon
     Dosage: 195 MILLIGRAM, CYCLICAL (ONE CYCLE) (130 MG/M2 ON DAY ONE, ASSUMED 195 MG OF OXALIPLATIN, EVERY 3 WE
     Route: 042
  6. OXALIPLATIN [Interacting]
     Active Substance: OXALIPLATIN
     Dosage: 100 MILLIGRAM/SQ. METER
     Route: 042
  7. OXALIPLATIN [Interacting]
     Active Substance: OXALIPLATIN
     Dosage: 130 MILLIGRAM/SQ. METER (CYCLICAL) (2 HOURS) (ON DAY 1) (CAPOX CHEMOTHERAPY REGIMEN)
     Route: 042
  8. CAPECITABINE [Interacting]
     Active Substance: CAPECITABINE
     Indication: Adenocarcinoma of colon
     Dosage: 84000 MILLIGRAM, CYCLICAL (ONE CCLE) (1000 MG/M2, TWICE DAILY) FROM DAY 1 TO 14, EVERY THREE WEEKS,
     Route: 048
  9. CAPECITABINE [Interacting]
     Active Substance: CAPECITABINE
     Dosage: UNK (DOSE REDUCED FROM 1000 MG/M2 TWICE DAILY TO 625 MG/M2 TWICE DAILY)
     Route: 048
  10. FLECAINIDE [Interacting]
     Active Substance: FLECAINIDE
     Indication: Product used for unknown indication
     Dosage: 100 MILLIGRAM PER DAY
     Route: 065
  11. EZETIMIBE [Interacting]
     Active Substance: EZETIMIBE
     Indication: Product used for unknown indication
     Dosage: 10 MILLIGRAM PER DAY
     Route: 065
  12. ESOMEPRAZOLE [Concomitant]
     Active Substance: ESOMEPRAZOLE
     Indication: Product used for unknown indication
     Dosage: 20 MILLIGRAM PER DAY
     Route: 065

REACTIONS (6)
  - Palmar-plantar erythrodysaesthesia syndrome [Recovered/Resolved]
  - Conjunctivitis [Unknown]
  - Drug interaction [Unknown]
  - Diarrhoea [Recovered/Resolved]
  - Paraesthesia [Unknown]
  - Nausea [Unknown]
